FAERS Safety Report 6886486-1 (Version None)
Quarter: 2010Q3

REPORT INFORMATION
  Report Type: 
  Country: None (occurrence: None)
  Receive Date: 20100730
  Receipt Date: 20100721
  Transmission Date: 20110219
  Serious: Yes (Hospitalization)
  Sender: FDA-Public Use
  Company Number: US-BIOGENIDEC-2010BI011381

PATIENT
  Age: 56 Year
  Sex: Female

DRUGS (1)
  1. TYSABRI [Suspect]
     Indication: MULTIPLE SCLEROSIS
     Route: 042
     Dates: start: 20080331, end: 20100223

REACTIONS (5)
  - FALL [None]
  - INTERVERTEBRAL DISCITIS [None]
  - MULTIPLE SCLEROSIS [None]
  - PAIN [None]
  - SPINAL FRACTURE [None]
